FAERS Safety Report 9034391 (Version 1)
Quarter: 2013Q1

REPORT INFORMATION
  Report Type: Spontaneous
  Country: US (occurrence: US)
  Receive Date: 20130128
  Receipt Date: 20130128
  Transmission Date: 20140127
  Serious: Yes (Other)
  Sender: FDA-Public Use
  Company Number: US-009507513-1301USA010493

PATIENT
  Sex: Male

DRUGS (2)
  1. PEGINTRON [Suspect]
     Indication: HEPATITIS C
     Dosage: UNK
     Dates: start: 20100101, end: 20100202
  2. RIBAVIRIN [Suspect]
     Indication: HEPATITIS C
     Dosage: UNK
     Dates: start: 20100101, end: 20100202

REACTIONS (5)
  - Ascites [Unknown]
  - Arrhythmia [Unknown]
  - Oedema [Unknown]
  - Dyspepsia [Unknown]
  - Dry mouth [Unknown]
